FAERS Safety Report 6128150-2 (Version None)
Quarter: 2009Q1

REPORT INFORMATION
  Report Type: 
  Country: None (occurrence: None)
  Receive Date: 20090323
  Receipt Date: 20090318
  Transmission Date: 20090719
  Serious: No
  Sender: FDA-Public Use
  Company Number: CH-EISAI MEDICAL RESEARCH-E2020-04257-SPO-CH

PATIENT
  Sex: Female
  Weight: 78 kg

DRUGS (4)
  1. ARICEPT [Suspect]
     Indication: DEMENTIA ALZHEIMER'S TYPE
     Route: 048
     Dates: start: 20090215, end: 20090216
  2. DAFALGAN [Concomitant]
  3. FLAMON [Concomitant]
  4. SYMFONA [Concomitant]

REACTIONS (1)
  - LIPOEDEMA [None]
